FAERS Safety Report 6760179-3 (Version None)
Quarter: 2010Q2

REPORT INFORMATION
  Report Type: 
  Country: None (occurrence: None)
  Receive Date: 20100524
  Receipt Date: 20100316
  Transmission Date: 20101027
  Serious: No
  Sender: FDA-Public Use
  Company Number: 003767

PATIENT
  Sex: Female

DRUGS (3)
  1. CIMZIA [Suspect]
     Indication: CROHN'S DISEASE
     Dosage: (400 MG SUBCUTANEOUS) ; (400 MG SUBCUTANEOUS)
     Route: 058
     Dates: start: 20081226
  2. CIMZIA [Suspect]
     Indication: CROHN'S DISEASE
     Dosage: (400 MG SUBCUTANEOUS) ; (400 MG SUBCUTANEOUS)
     Route: 058
     Dates: start: 20100315
  3. CIMZIA [Suspect]

REACTIONS (8)
  - ABDOMINAL DISTENSION [None]
  - COUGH [None]
  - INJECTION SITE ANAESTHESIA [None]
  - INJECTION SITE NODULE [None]
  - INJECTION SITE PAIN [None]
  - INJECTION SITE PARAESTHESIA [None]
  - NASOPHARYNGITIS [None]
  - RESPIRATORY TRACT CONGESTION [None]
